FAERS Safety Report 11835570 (Version 1)
Quarter: 2015Q4

REPORT INFORMATION
  Report Type: Spontaneous
  Country: US (occurrence: US)
  Receive Date: 20151215
  Receipt Date: 20151215
  Transmission Date: 20160305
  Serious: No
  Sender: FDA-Public Use
  Company Number: US-ELI_LILLY_AND_COMPANY-US201511007190

PATIENT
  Sex: Female

DRUGS (1)
  1. CYMBALTA [Suspect]
     Active Substance: DULOXETINE HYDROCHLORIDE
     Indication: PRODUCT USED FOR UNKNOWN INDICATION
     Dosage: 60 MG, UNKNOWN
     Route: 065

REACTIONS (10)
  - Dizziness [Unknown]
  - Tremor [Unknown]
  - Dry mouth [Unknown]
  - Ocular hyperaemia [Unknown]
  - Speech disorder [Unknown]
  - Hyperhidrosis [Unknown]
  - Flushing [Unknown]
  - Fall [Unknown]
  - Head injury [Unknown]
  - Weight increased [Unknown]
